FAERS Safety Report 11761805 (Version 1)
Quarter: 2015Q4

REPORT INFORMATION
  Report Type: Spontaneous
  Country: US (occurrence: US)
  Receive Date: 20151120
  Receipt Date: 20151120
  Transmission Date: 20160304
  Serious: No
  Sender: FDA-Public Use
  Company Number: US-ELI_LILLY_AND_COMPANY-US201212003216

PATIENT
  Age: 67 Year
  Sex: Female

DRUGS (1)
  1. FORTEO [Suspect]
     Active Substance: TERIPARATIDE
     Indication: OSTEOPOROSIS
     Dosage: 20 UG, QD
     Dates: start: 201209

REACTIONS (8)
  - Cough [Unknown]
  - Choking sensation [Unknown]
  - Pain [Unknown]
  - Dyspepsia [Recovered/Resolved]
  - Pain [Recovering/Resolving]
  - Rib fracture [Recovered/Resolved]
  - Pruritus [Unknown]
  - Choking [Unknown]

NARRATIVE: CASE EVENT DATE: 201210
